FAERS Safety Report 16234546 (Version 5)
Quarter: 2023Q4

REPORT INFORMATION
  Report Type: Report from Study
  Country: AT (occurrence: AT)
  Receive Date: 20190424
  Receipt Date: 20231207
  Transmission Date: 20240110
  Serious: Yes (Hospitalization, Other)
  Sender: FDA-Public Use
  Company Number: AT-TAKEDA-2019TUS023515

PATIENT
  Sex: Male

DRUGS (12)
  1. BRENTUXIMAB VEDOTIN [Suspect]
     Active Substance: BRENTUXIMAB VEDOTIN
     Indication: Hodgkin^s disease
     Dosage: 136.8 MILLIGRAM
     Route: 065
     Dates: start: 20190405
  2. BRENTUXIMAB VEDOTIN [Suspect]
     Active Substance: BRENTUXIMAB VEDOTIN
     Dosage: 180 MILLIGRAM
     Route: 065
     Dates: start: 20190426
  3. DEXAMETHASONE [Suspect]
     Active Substance: DEXAMETHASONE
     Indication: Hodgkin^s disease
     Dosage: UNK
     Route: 065
     Dates: start: 20190406
  4. DEXAMETHASONE [Suspect]
     Active Substance: DEXAMETHASONE
     Dosage: 160 MILLIGRAM
     Route: 065
     Dates: start: 20190427
  5. ETOPOSIDE [Suspect]
     Active Substance: ETOPOSIDE
     Indication: Hodgkin^s disease
     Dosage: 900 MILLIGRAM
     Route: 065
     Dates: start: 20190406
  6. ETOPOSIDE [Suspect]
     Active Substance: ETOPOSIDE
     Dosage: 900 MILLIGRAM
     Route: 065
     Dates: start: 20190427
  7. DOXORUBICIN [Suspect]
     Active Substance: DOXORUBICIN
     Indication: Hodgkin^s disease
     Dosage: 80 MILLIGRAM
     Route: 005
     Dates: start: 20190406
  8. DOXORUBICIN [Suspect]
     Active Substance: DOXORUBICIN
     Dosage: 79 MILLIGRAM
     Route: 065
     Dates: start: 20190427
  9. CYCLOPHOSPHAMIDE [Suspect]
     Active Substance: CYCLOPHOSPHAMIDE
     Indication: Hodgkin^s disease
     Dosage: 2500 MILLIGRAM
     Route: 065
     Dates: start: 20190406
  10. CYCLOPHOSPHAMIDE [Suspect]
     Active Substance: CYCLOPHOSPHAMIDE
     Dosage: 2500 MILLIGRAM
     Route: 065
     Dates: start: 20190427
  11. DACARBAZINE [Suspect]
     Active Substance: DACARBAZINE
     Indication: Hodgkin^s disease
     Dosage: 1000 MILLIGRAM
     Route: 065
     Dates: start: 20190407
  12. DACARBAZINE [Suspect]
     Active Substance: DACARBAZINE
     Dosage: 1000 MILLIGRAM
     Route: 065
     Dates: start: 20190428

REACTIONS (2)
  - Neutropenia [Recovered/Resolved]
  - Pyrexia [Recovered/Resolved]

NARRATIVE: CASE EVENT DATE: 20190415
